FAERS Safety Report 16873888 (Version 2)
Quarter: 2019Q4

REPORT INFORMATION
  Report Type: Report from Study
  Country: None (occurrence: JP)
  Receive Date: 20191001
  Receipt Date: 20191115
  Transmission Date: 20200122
  Serious: Yes (Hospitalization)
  Sender: FDA-Public Use
  Company Number: JP-ABBVIE-17K-087-2066403-00

PATIENT
  Age: 57 Year
  Sex: Male
  Weight: 57 kg

DRUGS (8)
  1. DUODOPA [Suspect]
     Active Substance: CARBIDOPA\LEVODOPA
     Indication: PARKINSON^S DISEASE
     Dosage: MD: 5 ML, CD: 2.7 ML/HR X 16 HR, ED: 4 ML/UNIT X 3
     Route: 050
     Dates: start: 20170722, end: 20170722
  2. DUODOPA [Suspect]
     Active Substance: CARBIDOPA\LEVODOPA
     Dosage: MD: 7.5 ML, CD: 4.1ML/HR X 16 HR, ED: 3.5 ML/UNIT X 2
     Route: 050
     Dates: start: 20170725, end: 20170728
  3. MECOBALAMIN [Concomitant]
     Active Substance: METHYLCOBALAMIN
     Indication: PROPHYLAXIS
     Route: 048
     Dates: start: 20170801
  4. DUODOPA [Suspect]
     Active Substance: CARBIDOPA\LEVODOPA
     Dosage: MD: 5 ML, CD: 2.7 ML/HR X 16 HR, ED: 4 ML/UNIT X 3
     Route: 050
     Dates: start: 20170723, end: 20170724
  5. DUODOPA [Suspect]
     Active Substance: CARBIDOPA\LEVODOPA
     Dosage: MD: 7.5 ML, CD: 4.4 ML/HR X 16 HR, ED: 3.0 ML/UNIT X 1 TIME
     Route: 050
     Dates: start: 20180612
  6. AMANTADINE HYDROCHLORIDE. [Concomitant]
     Active Substance: AMANTADINE HYDROCHLORIDE
     Indication: DYSKINESIA
     Route: 048
     Dates: start: 20180109
  7. DUODOPA [Suspect]
     Active Substance: CARBIDOPA\LEVODOPA
     Dosage: MD: 7.5 ML, CD: 4.8 ML/HR X 16 HR, ED: 4 ML/UNIT X 2
     Route: 050
     Dates: start: 20170729, end: 20180130
  8. DUODOPA [Suspect]
     Active Substance: CARBIDOPA\LEVODOPA
     Route: 050
     Dates: start: 20180130, end: 20180611

REACTIONS (2)
  - Peritonitis [Recovered/Resolved]
  - On and off phenomenon [Unknown]

NARRATIVE: CASE EVENT DATE: 20170806
